FAERS Safety Report 8338018-9 (Version None)
Quarter: 2012Q2

REPORT INFORMATION
  Report Type: 
  Country: None (occurrence: None)
  Receive Date: 20120504
  Receipt Date: 20120425
  Transmission Date: 20120825
  Serious: Yes (Hospitalization)
  Sender: FDA-Public Use
  Company Number: JP-ABBOTT-12P-087-0927013-00

PATIENT
  Age: 75 Year
  Sex: Male

DRUGS (11)
  1. PRAMIPEXOLE DIHYDROCHLORIDE [Concomitant]
     Indication: PARKINSON'S DISEASE
     Route: 048
  2. BICALUTAMIDE [Suspect]
     Indication: PROSTATE CANCER
     Route: 048
     Dates: start: 20120401, end: 20120411
  3. ANPLAG [Suspect]
     Indication: SPINAL OSTEOARTHRITIS
     Route: 048
     Dates: end: 20120411
  4. NORVASC [Concomitant]
     Indication: HYPERTENSION
     Route: 048
  5. LEUPROLIDE ACETATE [Suspect]
     Indication: PROSTATE CANCER
     Route: 058
     Dates: start: 20120407
  6. COMTAN [Concomitant]
     Indication: PARKINSON'S DISEASE
     Route: 048
  7. JUVELA [Concomitant]
     Indication: HYPERLIPIDAEMIA
     Route: 048
  8. CARBIDOPA AND LEVODOPA [Concomitant]
     Indication: PARKINSON'S DISEASE
     Route: 048
  9. ENALAPRIL MALEATE [Concomitant]
     Indication: HYPERTENSION
     Route: 048
  10. TAMBOCOR [Concomitant]
     Indication: ATRIAL FIBRILLATION
     Route: 048
  11. FP OD [Concomitant]
     Indication: PARKINSON'S DISEASE
     Route: 048

REACTIONS (1)
  - PULMONARY ALVEOLAR HAEMORRHAGE [None]
